FAERS Safety Report 4579120-7 (Version None)
Quarter: 2005Q1

REPORT INFORMATION
  Report Type: 
  Country: None (occurrence: None)
  Receive Date: 20050121
  Receipt Date: 20040408
  Transmission Date: 20050727
  Serious: Yes (Other)
  Sender: FDA-Public Use
  Company Number: STA-AE-04-MTX-147

PATIENT

DRUGS (4)
  1. METHOTREXATE [Suspect]
     Indication: WEGENER'S GRANULOMATOSIS
  2. PLACEBO FOR ETANERCEPT (PLACEBO FOR ETANERCEPT, INJECTION) [Suspect]
     Dosage: 1 DOSE 2X PER 1 WK, SC
     Route: 058
  3. SULFAMETHOXAZOLE + TRIMETHOPRIM [Suspect]
  4. CORTICOSTEROID NOS (CORTICOSTEROID NOS) [Concomitant]

REACTIONS (2)
  - LEUKOPENIA [None]
  - WHITE BLOOD CELL COUNT DECREASED [None]
